FAERS Safety Report 16441661 (Version 1)
Quarter: 2019Q2

REPORT INFORMATION
  Report Type: Report from Study
  Country: None (occurrence: US)
  Receive Date: 20190617
  Receipt Date: 20190617
  Transmission Date: 20190711
  Serious: Yes (Hospitalization)
  Sender: FDA-Public Use
  Company Number: US-US WORLDMEDS, LLC-USW201804-000583

PATIENT
  Age: 69 Year
  Sex: Male
  Weight: 83.91 kg

DRUGS (12)
  1. MYRBETRIQ [Concomitant]
     Active Substance: MIRABEGRON
     Dosage: 25 MG, DAILY
  2. FLUVOXAMINE [Concomitant]
     Active Substance: FLUVOXAMINE
     Dosage: 50 MG, EVERY BEDTIME
  3. IRON [Concomitant]
     Active Substance: IRON
  4. LEVOTHYROXINE. [Concomitant]
     Active Substance: LEVOTHYROXINE
  5. MIRAPEX ER [Concomitant]
     Active Substance: PRAMIPEXOLE DIHYDROCHLORIDE
     Dosage: 1.5 MG, 2 TABLETS
     Route: 048
  6. CLONAZEPAM. [Concomitant]
     Active Substance: CLONAZEPAM
     Dosage: 0.5 MG, 2 TABLETS, PER ORAL, EVERY NIGHT AT BEDTIME
  7. VITAMIN C [Concomitant]
     Active Substance: ASCORBIC ACID
     Dosage: 500 MG, DAILY
  8. APOKYN [Suspect]
     Active Substance: APOMORPHINE HYDROCHLORIDE
     Indication: PARKINSON^S DISEASE
     Dosage: 0.3 ML, AS NEEDED
     Route: 058
     Dates: start: 20180315, end: 20180421
  9. MIRAPEX [Concomitant]
     Active Substance: PRAMIPEXOLE DIHYDROCHLORIDE
     Dosage: 0.25 MG, THREE TIMES A DAY
  10. SIMVASTATIN. [Concomitant]
     Active Substance: SIMVASTATIN
     Dosage: 40 MG, EVERY NIGHT AT BEDTIME
  11. EXELON [Concomitant]
     Active Substance: RIVASTIGMINE TARTRATE
     Route: 062
  12. LISINOPRIL. [Concomitant]
     Active Substance: LISINOPRIL

REACTIONS (9)
  - Dyspnoea [Recovered/Resolved]
  - Feeling abnormal [Recovered/Resolved]
  - Erythema [Recovering/Resolving]
  - Injection site nodule [Unknown]
  - Freezing phenomenon [Unknown]
  - Injection site pruritus [Unknown]
  - Ecchymosis [Recovering/Resolving]
  - Dizziness [Recovered/Resolved]
  - Wheezing [Recovered/Resolved]

NARRATIVE: CASE EVENT DATE: 20180315
